FAERS Safety Report 18116023 (Version 1)
Quarter: 2020Q3

REPORT INFORMATION
  Report Type: Spontaneous
  Country: US (occurrence: US)
  Receive Date: 20200806
  Receipt Date: 20200806
  Transmission Date: 20201103
  Serious: Yes (Other)
  Sender: FDA-Public Use
  Company Number: US-B.I. PHARMACEUTICALS,INC./RIDGEFIELD-2020-BI-039185

PATIENT
  Age: 17 Year

DRUGS (1)
  1. MOBIC [Suspect]
     Active Substance: MELOXICAM
     Indication: BACK PAIN
     Route: 065

REACTIONS (4)
  - Myositis [Recovered/Resolved]
  - Propionibacterium infection [Recovered/Resolved]
  - Sacroiliitis [Recovered/Resolved]
  - Osteomyelitis acute [Recovered/Resolved]
